FAERS Safety Report 9599846 (Version 1)
Quarter: 2013Q4

REPORT INFORMATION
  Report Type: Spontaneous
  Country: US (occurrence: US)
  Receive Date: 20131004
  Receipt Date: 20131004
  Transmission Date: 20140711
  Serious: No
  Sender: FDA-Public Use
  Company Number: US-AMGEN-USASP2013031359

PATIENT
  Age: 54 Year
  Sex: Female
  Weight: 99.77 kg

DRUGS (8)
  1. ENBREL [Suspect]
     Indication: PRODUCT USED FOR UNKNOWN INDICATION
     Dosage: 50 MG, QWK
     Route: 058
  2. ENBREL [Suspect]
  3. METHOTREXATE [Concomitant]
     Dosage: 2.5 MG, UNK
  4. OMEPRAZOLE [Concomitant]
     Dosage: 20 MG, UNK
  5. SIMVASTATIN [Concomitant]
     Dosage: 10 MG, UNK
  6. FOLIC ACID [Concomitant]
     Dosage: UNK
  7. DIAZEPAM [Concomitant]
     Dosage: 5 MG, UNK
  8. CALCIUM [Concomitant]
     Dosage: 500 MG, UNK

REACTIONS (3)
  - Injection site mass [Unknown]
  - Injection site pain [Unknown]
  - Dry eye [Unknown]
